FAERS Safety Report 14543296 (Version 1)
Quarter: 2018Q1

REPORT INFORMATION
  Report Type: Spontaneous
  Country: US (occurrence: US)
  Receive Date: 20180216
  Receipt Date: 20180216
  Transmission Date: 20180509
  Serious: No
  Sender: FDA-Public Use
  Company Number: US-LANTHEUS-LMI-2017-00627

PATIENT
  Age: 45 Year
  Sex: Female
  Weight: 91 kg

DRUGS (2)
  1. HEPARIN [Concomitant]
     Active Substance: HEPARIN SODIUM
     Indication: PULMONARY EMBOLISM
     Dosage: UNK
     Route: 042
  2. DEFINITY [Suspect]
     Active Substance: PERFLUTREN
     Indication: ECHOCARDIOGRAM
     Dosage: 2 ML (1.5 ML DEFINITY PREPARED IN 8.5 ML DILUENT)
     Route: 040
     Dates: start: 20171205, end: 20171205

REACTIONS (4)
  - Erythema [Recovered/Resolved]
  - Muscle spasms [Recovering/Resolving]
  - Dyspnoea [Recovered/Resolved]
  - Chest discomfort [Recovered/Resolved]

NARRATIVE: CASE EVENT DATE: 20171205
